FAERS Safety Report 7531841-X (Version None)
Quarter: 2011Q2

REPORT INFORMATION
  Report Type: 
  Country: None (occurrence: None)
  Receive Date: 20110608
  Receipt Date: 20110530
  Transmission Date: 20111010
  Serious: Yes (Other)
  Sender: FDA-Public Use
  Company Number: SG-ROCHE-781014

PATIENT
  Age: 60 Year
  Sex: Male

DRUGS (4)
  1. DOXORUBICIN HCL [Suspect]
     Route: 065
  2. OXALIPLATIN [Suspect]
     Route: 065
  3. CAPECITABINE [Suspect]
     Route: 065
  4. BEVACIZUMAB [Suspect]
     Route: 065

REACTIONS (3)
  - DECREASED APPETITE [None]
  - MUCOSAL INFLAMMATION [None]
  - PALMAR-PLANTAR ERYTHRODYSAESTHESIA SYNDROME [None]
